FAERS Safety Report 4678112-7 (Version None)
Quarter: 2005Q2

REPORT INFORMATION
  Report Type: 
  Country: None (occurrence: None)
  Receive Date: 20050527
  Receipt Date: 20050518
  Transmission Date: 20051028
  Serious: Yes (Hospitalization)
  Sender: FDA-Public Use
  Company Number: SP-2005-002195

PATIENT
  Sex: Female

DRUGS (1)
  1. OLMETEC [Suspect]
     Indication: HYPERTENSION

REACTIONS (4)
  - DEHYDRATION [None]
  - DIARRHOEA [None]
  - HYPERKALAEMIA [None]
  - RENAL FAILURE ACUTE [None]
